FAERS Safety Report 20406778 (Version 1)
Quarter: 2022Q1

REPORT INFORMATION
  Report Type: Spontaneous
  Country: US (occurrence: US)
  Receive Date: 20220131
  Receipt Date: 20220131
  Transmission Date: 20220423
  Serious: No
  Sender: FDA-Public Use
  Company Number: US-GLAXOSMITHKLINE-USCH2022003620

PATIENT
  Age: 66 Year
  Sex: Female

DRUGS (1)
  1. ADVIL PM [Suspect]
     Active Substance: DIPHENHYDRAMINE CITRATE\IBUPROFEN
     Indication: Sleep disorder
     Dosage: 1.5 DF
     Dates: start: 20220124

REACTIONS (2)
  - Drug ineffective [Recovered/Resolved]
  - Incorrect dose administered [Unknown]
